FAERS Safety Report 5808839-2 (Version None)
Quarter: 2008Q3

REPORT INFORMATION
  Report Type: 
  Country: None (occurrence: None)
  Receive Date: 20080714
  Receipt Date: 20080701
  Transmission Date: 20090109
  Serious: Yes (Hospitalization, Other)
  Sender: FDA-Public Use
  Company Number: US-ELI_LILLY_AND_COMPANY-US200807000236

PATIENT
  Age: 65 Year
  Sex: Male

DRUGS (4)
  1. CYMBALTA [Suspect]
     Indication: DEPRESSION
     Dosage: 60 MG, DAILY (1/D)
     Dates: start: 20080401
  2. ENALAPRIL MALEATE [Concomitant]
     Dosage: 20 MG, DAILY (1/D)
  3. NADOLOL [Concomitant]
     Dosage: 20 MG, DAILY (1/D)
  4. HYDROCHLORZIDE [Concomitant]
     Dosage: 50 MG, DAILY (1/D)

REACTIONS (1)
  - OESOPHAGEAL VARICES HAEMORRHAGE [None]
